FAERS Safety Report 5651282-X (Version None)
Quarter: 2008Q1

REPORT INFORMATION
  Report Type: 
  Country: None (occurrence: None)
  Receive Date: 20080305
  Receipt Date: 20080222
  Transmission Date: 20080703
  Serious: Yes (Life-Threatening, Hospitalization)
  Sender: FDA-Public Use
  Company Number: MX-WYE-H01962308

PATIENT
  Sex: Male
  Weight: 72 kg

DRUGS (5)
  1. TYGACIL [Suspect]
     Indication: PROPHYLAXIS
     Dosage: 100 MG/200 CC SALINE
     Route: 042
     Dates: start: 20080104, end: 20080104
  2. MIDAZOLAM HCL [Concomitant]
     Indication: ANAESTHESIA
     Dosage: 2 MG/ML
     Dates: start: 20080104, end: 20080104
  3. DIPRIVAN [Concomitant]
     Indication: ANAESTHESIA
     Dosage: 150 MG/15ML
     Dates: start: 20080104, end: 20080104
  4. FENTANEST [Concomitant]
     Indication: ANAESTHESIA
     Dosage: 250 MCG/5ML
     Dates: start: 20080104, end: 20080104
  5. NORCURON [Concomitant]
     Indication: ANAESTHESIA
     Dosage: 8 MG/4 ML
     Dates: start: 20080104, end: 20080104

REACTIONS (2)
  - ACUTE PULMONARY OEDEMA [None]
  - CARDIAC ARREST [None]
